FAERS Safety Report 6244812-0 (Version None)
Quarter: 2009Q2

REPORT INFORMATION
  Report Type: 
  Country: None (occurrence: None)
  Receive Date: 20090625
  Receipt Date: 20090619
  Transmission Date: 20091009
  Serious: Yes (Other)
  Sender: FDA-Public Use
  Company Number: US-WATSON-2009-04663

PATIENT
  Sex: Male

DRUGS (1)
  1. FERRLECIT [Suspect]
     Indication: IRON DEFICIENCY ANAEMIA
     Dosage: 250 MG OVER 1 HOUR, SINGLE
     Route: 042
     Dates: start: 20090608, end: 20090608

REACTIONS (5)
  - ABDOMINAL PAIN [None]
  - BURNING SENSATION [None]
  - CONVULSION [None]
  - HYPOTENSION [None]
  - INCONTINENCE [None]
